FAERS Safety Report 12342027 (Version 8)
Quarter: 2016Q4

REPORT INFORMATION
  Report Type: Report from Study
  Country: JP (occurrence: JP)
  Receive Date: 20160506
  Receipt Date: 20161010
  Transmission Date: 20170207
  Serious: Yes (Death, Hospitalization)
  Sender: FDA-Public Use
  Company Number: JP-EISAI MEDICAL RESEARCH-EC-2016-016670

PATIENT
  Age: 66 Year
  Sex: Male
  Weight: 47 kg

DRUGS (20)
  1. LYRICA [Concomitant]
     Active Substance: PREGABALIN
  2. NEXIUM [Concomitant]
     Active Substance: ESOMEPRAZOLE MAGNESIUM
  3. HYALEIN [Concomitant]
     Active Substance: HYALURONATE SODIUM
  4. AMLODIPINE [Concomitant]
     Active Substance: AMLODIPINE BESYLATE
  5. TAKECAB [Concomitant]
     Active Substance: VONOPRAZAN FUMURATE
  6. OXINORM/OXYCODONE [Concomitant]
  7. GASCON [Concomitant]
     Active Substance: DIMETHICONE
  8. ARASENA-A [Concomitant]
     Active Substance: VIDARABINE
  9. LENVIMA [Suspect]
     Active Substance: LENVATINIB
     Indication: BILE DUCT CANCER
     Route: 048
     Dates: start: 20160317, end: 20160323
  10. NOSPOL [Concomitant]
  11. FOIPAN [Concomitant]
     Active Substance: CAMOSTAT MESYLATE
  12. ENSURE [Concomitant]
     Active Substance: AMINO ACIDS\DEXTROSE\ELECTROLYTES NOS\SOYBEAN OIL\VITAMINS
  13. CALONAL [Concomitant]
     Active Substance: ACETAMINOPHEN
  14. FERRUM [Concomitant]
     Active Substance: FERROUS FUMARATE
  15. LOXOPROFEN [Concomitant]
     Active Substance: LOXOPROFEN
  16. LENVIMA [Suspect]
     Active Substance: LENVATINIB
     Route: 048
     Dates: start: 20160329, end: 20160420
  17. JANUVIA [Concomitant]
     Active Substance: SITAGLIPTIN PHOSPHATE
  18. LENDORMIN D [Concomitant]
     Active Substance: BROTIZOLAM
  19. KERATINAMIN KOWA CREAM [Concomitant]
  20. CYTOTEC [Concomitant]
     Active Substance: MISOPROSTOL

REACTIONS (2)
  - Anastomotic ulcer [Recovering/Resolving]
  - Gastrointestinal obstruction [Fatal]

NARRATIVE: CASE EVENT DATE: 20160428
